FAERS Safety Report 11610624 (Version 1)
Quarter: 2015Q4

REPORT INFORMATION
  Report Type: Spontaneous
  Country: US (occurrence: None)
  Receive Date: 20151007
  Receipt Date: 20151007
  Transmission Date: 20160304
  Serious: No
  Sender: FDA-Public Use
  Company Number: None

PATIENT
  Age: 82 Year
  Sex: Male

DRUGS (13)
  1. SINGULAIR [Concomitant]
     Active Substance: MONTELUKAST SODIUM
  2. ALBUTEROL. [Concomitant]
     Active Substance: ALBUTEROL
  3. LETROZOLE. [Concomitant]
     Active Substance: LETROZOLE
  4. COUMADIN [Concomitant]
     Active Substance: WARFARIN SODIUM
  5. LASIX [Concomitant]
     Active Substance: FUROSEMIDE
  6. CALCIUM [Concomitant]
     Active Substance: CALCIUM
  7. IBRANCE [Suspect]
     Active Substance: PALBOCICLIB
     Indication: NEOPLASM MALIGNANT
     Route: 048
     Dates: start: 20150723
  8. LORATADINE. [Concomitant]
     Active Substance: LORATADINE
  9. ADVAIR HFA [Concomitant]
     Active Substance: FLUTICASONE PROPIONATE\SALMETEROL XINAFOATE
  10. IPRATROPIUM [Concomitant]
     Active Substance: IPRATROPIUM
  11. METOPROLOL [Concomitant]
     Active Substance: METOPROLOL
  12. APAP/CODEINE [Concomitant]
     Active Substance: ACETAMINOPHEN\CODEINE PHOSPHATE
  13. LOVASTATIN. [Concomitant]
     Active Substance: LOVASTATIN

REACTIONS (2)
  - Epistaxis [None]
  - Nasal mucosal disorder [None]
